FAERS Safety Report 15127462 (Version 1)
Quarter: 2018Q3

REPORT INFORMATION
  Report Type: Spontaneous
  Country: US (occurrence: US)
  Receive Date: 20180710
  Receipt Date: 20180710
  Transmission Date: 20181010
  Serious: No
  Sender: FDA-Public Use
  Company Number: US-ACTELION-A-NJ2018-174130

PATIENT
  Age: 52 Year
  Sex: Male

DRUGS (1)
  1. VALCHLOR [Suspect]
     Active Substance: MECHLORETHAMINE
     Indication: MYCOSIS FUNGOIDES
     Dosage: THIN FILM TO AFFECTED SKIN, QD
     Route: 061
     Dates: start: 20180412

REACTIONS (4)
  - Burning sensation [Unknown]
  - Nonspecific reaction [Unknown]
  - Dry skin [Unknown]
  - Pruritus [Unknown]
